FAERS Safety Report 18803514 (Version 2)
Quarter: 2021Q2

REPORT INFORMATION
  Report Type: Spontaneous
  Country: GB (occurrence: GB)
  Receive Date: 20210128
  Receipt Date: 20210407
  Transmission Date: 20210717
  Serious: Yes (Other)
  Sender: FDA-Public Use
  Company Number: GB-VERTEX PHARMACEUTICALS-2021-000937

PATIENT
  Sex: Female

DRUGS (42)
  1. VITAMIN B [Concomitant]
     Active Substance: VITAMIN B
     Dosage: 1 OD
  2. NUTRIZYM 22 [Concomitant]
     Dosage: PRN
  3. COLOBREATHE [Concomitant]
     Active Substance: COLISTIMETHATE SODIUM
     Dosage: 1.66MU BD
  4. COLECALCIFEROL [Concomitant]
     Active Substance: CHOLECALCIFEROL
     Dosage: 800UNITS 3 OD
  5. VITAMIN E [Concomitant]
     Active Substance: .ALPHA.-TOCOPHEROL
     Dosage: 200UNITS OD
  6. GAVISCON [Concomitant]
     Active Substance: ALUMINUM HYDROXIDE\MAGNESIUM CARBONATE
     Dosage: PRN
  7. DIAZEPAM. [Concomitant]
     Active Substance: DIAZEPAM
     Dosage: 2MG 1 ?2 PRN
  8. LACRILUBE EYE DROPS [Concomitant]
     Dosage: PRN
  9. ETORICOXIB. [Concomitant]
     Active Substance: ETORICOXIB
     Dosage: 90MG OD
  10. CO?DYDRAMOL [Concomitant]
     Active Substance: ACETAMINOPHEN\DIHYDROCODEINE
     Dosage: 10/500 TABS ? 1?2 PRN
  11. MAGNESIUM GLYCEROPHOSPHATE [Concomitant]
     Active Substance: MAGNESIUM GLYCEROPHOSPHATE
     Dosage: 1 OD
  12. ESTRADIOL. [Concomitant]
     Active Substance: ESTRADIOL
     Dosage: 1.5 PUMPS / DAY
  13. AZITHROMYCIN ANHYDROUS. [Concomitant]
     Active Substance: AZITHROMYCIN ANHYDROUS
     Dosage: 500MG ALT DAYS
  14. SODIUM CHLORIDE. [Concomitant]
     Active Substance: SODIUM CHLORIDE
     Dosage: 7% NEBS OD PRN
  15. SODIUM DOCUSATE [Concomitant]
     Active Substance: DOCUSATE SODIUM
     Dosage: 100MG TDS PRN
  16. SLOW SODIUM [Concomitant]
     Dosage: PRN
  17. DORNASE ALFA. [Concomitant]
     Active Substance: DORNASE ALFA
     Dosage: 2.5MG OD
  18. TERBUTALINE [Concomitant]
     Active Substance: TERBUTALINE
     Dosage: 500 INHALER ? PRN
  19. IBUPROFEN. [Concomitant]
     Active Substance: IBUPROFEN
     Dosage: 10% PRN
  20. TRAMADOL. [Concomitant]
     Active Substance: TRAMADOL
     Dosage: 50MG 1?2 PRN
  21. MOVICOL [Concomitant]
     Active Substance: POLYETHYLENE GLYCOL 3350\POTASSIUM CHLORIDE\SODIUM BICARBONATE\SODIUM CHLORIDE
  22. AZTREONAM. [Concomitant]
     Active Substance: AZTREONAM
     Dosage: 75MG TDS ALT MONTHS
  23. SENNA [Concomitant]
     Active Substance: SENNA LEAF\SENNOSIDES\SENNOSIDES A AND B
     Dosage: 7.5MG 3 TABS BD
  24. HYDROCORTISONE. [Concomitant]
     Active Substance: HYDROCORTISONE
     Dosage: PRN
  25. VISCOTEARS EYE DROPS [Concomitant]
     Dosage: PRN
  26. KAFTRIO [Suspect]
     Active Substance: ELEXACAFTOR\IVACAFTOR\TEZACAFTOR
     Indication: CYSTIC FIBROSIS
     Dosage: 2 OM
     Route: 048
     Dates: start: 20200821
  27. PULMICORT TURBUHALER [Concomitant]
     Active Substance: BUDESONIDE
     Dosage: 200 TT BD
  28. PICOLAX [Concomitant]
     Dosage: PRN
  29. LEVOTHYROXINE. [Concomitant]
     Active Substance: LEVOTHYROXINE
     Dosage: 50MCG OD
  30. BUTRANS [Concomitant]
     Active Substance: BUPRENORPHINE
     Dosage: 5MCG/HOUR
  31. SEPTRIN [Concomitant]
     Active Substance: SULFAMETHOXAZOLE\TRIMETHOPRIM
     Dosage: 960MG BD
  32. MENADIOL [Concomitant]
     Active Substance: MENADIOL
     Dosage: 10MG OD
  33. FORCEVAL [Concomitant]
     Active Substance: FOLIC ACID\IRON\MINERALS\VITAMINS
  34. LINAGLIPTIN [Concomitant]
     Active Substance: LINAGLIPTIN
     Dosage: 5MG OD
  35. LANSOPRAZOLE. [Concomitant]
     Active Substance: LANSOPRAZOLE
     Dosage: 30MG OD
  36. FEXOFENADINE [Concomitant]
     Active Substance: FEXOFENADINE HYDROCHLORIDE
     Dosage: 120MG OD
  37. KALYDECO [Suspect]
     Active Substance: IVACAFTOR
     Indication: CYSTIC FIBROSIS
     Dosage: 1 ON
     Route: 048
     Dates: start: 20200821
  38. GASTROGRAFIN [Concomitant]
     Active Substance: DIATRIZOATE MEGLUMINE\DIATRIZOATE SODIUM
     Dosage: 100ML PRN (4 A MONTH)
  39. PRUCALOPRIDE [Concomitant]
     Active Substance: PRUCALOPRIDE
     Dosage: 2 MG OD
  40. ZOPICLONE [Concomitant]
     Active Substance: ZOPICLONE
     Dosage: 3.75MG PRN
  41. PARACETAMOL [Concomitant]
     Active Substance: ACETAMINOPHEN
     Dosage: 500MG ? 1G QDS
  42. COCODAMOL [Concomitant]
     Active Substance: ACETAMINOPHEN\CODEINE PHOSPHATE
     Dosage: 30/500 PRN

REACTIONS (1)
  - Breast cancer [Not Recovered/Not Resolved]

NARRATIVE: CASE EVENT DATE: 20210118
